FAERS Safety Report 6059482-4 (Version None)
Quarter: 2009Q1

REPORT INFORMATION
  Report Type: 
  Country: None (occurrence: None)
  Receive Date: 20090130
  Receipt Date: 20090130
  Transmission Date: 20090719
  Serious: Yes (Other)
  Sender: FDA-Public Use
  Company Number: US-PFIZER INC-2008092409

PATIENT
  Sex: Female
  Weight: 51.363 kg

DRUGS (4)
  1. CELEBREX [Suspect]
     Indication: PAIN
     Dates: start: 20081001
  2. ARTHROTEC [Suspect]
  3. OXYCONTIN [Concomitant]
  4. NORCO [Concomitant]

REACTIONS (4)
  - CONTUSION [None]
  - DRUG INEFFECTIVE [None]
  - HIP ARTHROPLASTY [None]
  - INFLUENZA LIKE ILLNESS [None]
